FAERS Safety Report 4884184-7 (Version None)
Quarter: 2005Q4

REPORT INFORMATION
  Report Type: 
  Country: None (occurrence: None)
  Receive Date: 20051201
  Receipt Date: 20050906
  Transmission Date: 20060501
  Serious: No
  Sender: FDA-Public Use
  Company Number: 2005PV001919

PATIENT
  Age: 43 Year
  Sex: Female
  Weight: 117.9352 kg

DRUGS (2)
  1. BYETTA [Suspect]
     Indication: DIABETES MELLITUS NON-INSULIN-DEPENDENT
     Dosage: 5 MCG;BID;SC
     Route: 058
     Dates: start: 20050905, end: 20050916
  2. ACTOS [Concomitant]

REACTIONS (3)
  - DECREASED APPETITE [None]
  - INJECTION SITE PRURITUS [None]
  - INJECTION SITE RASH [None]
